FAERS Safety Report 13523787 (Version 1)
Quarter: 2017Q2

REPORT INFORMATION
  Report Type: Spontaneous
  Country: US (occurrence: US)
  Receive Date: 20170508
  Receipt Date: 20170508
  Transmission Date: 20170830
  Serious: No
  Sender: FDA-Public Use
  Company Number: US-VIFOR (INTERNATIONAL) INC.-VIT-2017-03415

PATIENT
  Sex: Female

DRUGS (3)
  1. OCUVITE [Concomitant]
     Active Substance: VITAMINS
     Indication: EYE DISORDER
  2. ELIQUIS [Concomitant]
     Active Substance: APIXABAN
     Indication: THROMBOSIS
  3. VELTASSA [Suspect]
     Active Substance: PATIROMER
     Indication: BLOOD POTASSIUM ABNORMAL
     Route: 048
     Dates: start: 201702

REACTIONS (4)
  - Product taste abnormal [Unknown]
  - Product quality issue [Unknown]
  - Off label use [Unknown]
  - Product preparation error [Unknown]

NARRATIVE: CASE EVENT DATE: 2017
